FAERS Safety Report 9668957 (Version 1)
Quarter: 2013Q4

REPORT INFORMATION
  Report Type: Spontaneous
  Country: US (occurrence: US)
  Receive Date: 20131105
  Receipt Date: 20131105
  Transmission Date: 20140711
  Serious: No
  Sender: FDA-Public Use
  Company Number: US-MALLINCKRODT-T201301371

PATIENT
  Sex: 0

DRUGS (7)
  1. PENNSAID TOPICAL [Suspect]
     Indication: ARTHRALGIA
     Dosage: UNK
     Route: 061
     Dates: start: 20130218
  2. D VITAMIN NATURE MADE [Concomitant]
     Dosage: UNK
  3. TRICOR                             /00090101/ [Concomitant]
     Dosage: UNK
  4. THYROXINE [Concomitant]
     Dosage: UNK
  5. ALPRAZOLAM [Concomitant]
     Dosage: UNK
  6. SYNTHROID [Concomitant]
     Dosage: UNK
  7. TRIAMTERENE [Concomitant]
     Dosage: UNK

REACTIONS (2)
  - Swelling face [Recovering/Resolving]
  - Arthralgia [Recovering/Resolving]
